FAERS Safety Report 16686343 (Version 1)
Quarter: 2019Q3

REPORT INFORMATION
  Report Type: Report from Study
  Country: US (occurrence: US)
  Receive Date: 20190809
  Receipt Date: 20190809
  Transmission Date: 20191004
  Serious: Yes (Other)
  Sender: FDA-Public Use
  Company Number: US-ASTELLAS-2019US031751

PATIENT
  Age: 88 Year
  Sex: Male

DRUGS (1)
  1. ENZALUTAMIDE [Suspect]
     Active Substance: ENZALUTAMIDE
     Indication: HORMONE-REFRACTORY PROSTATE CANCER
     Route: 048
     Dates: start: 20190123

REACTIONS (3)
  - Choking [Unknown]
  - Foreign body in respiratory tract [Unknown]
  - Cytophagic histiocytic panniculitis [Unknown]

NARRATIVE: CASE EVENT DATE: 20190802
